FAERS Safety Report 15486989 (Version 4)
Quarter: 2018Q4

REPORT INFORMATION
  Report Type: Report from Study
  Country: CA (occurrence: CA)
  Receive Date: 20181011
  Receipt Date: 20181208
  Transmission Date: 20190205
  Serious: Yes (Other)
  Sender: FDA-Public Use
  Company Number: CA-BRISTOL-MYERS SQUIBB COMPANY-BMS-2018-084109

PATIENT
  Sex: Male

DRUGS (5)
  1. YERVOY [Suspect]
     Active Substance: IPILIMUMAB
     Indication: RENAL CELL CARCINOMA
     Dosage: 72.2 MG, DAILY
     Route: 065
     Dates: start: 20180831
  2. TRAMACET [Concomitant]
     Active Substance: ACETAMINOPHEN\TRAMADOL
     Indication: PRODUCT USED FOR UNKNOWN INDICATION
     Dosage: UNK
     Route: 065
  3. EDOXABAN [Concomitant]
     Active Substance: EDOXABAN TOSYLATE
     Indication: PRODUCT USED FOR UNKNOWN INDICATION
     Dosage: UNK
     Route: 065
  4. NIVOLUMAB [Suspect]
     Active Substance: NIVOLUMAB
     Indication: RENAL CELL CARCINOMA
     Dosage: 266 MG, DAILY
     Route: 065
     Dates: start: 20180831
  5. ATIVAN [Concomitant]
     Active Substance: LORAZEPAM
     Indication: PRODUCT USED FOR UNKNOWN INDICATION
     Dosage: UNK
     Route: 065

REACTIONS (14)
  - Product use in unapproved indication [Unknown]
  - Tendon injury [Unknown]
  - Pruritus [Unknown]
  - Off label use [Unknown]
  - Peripheral swelling [Unknown]
  - Cough [Unknown]
  - Pain [Unknown]
  - Fatigue [Recovering/Resolving]
  - Skin irritation [Recovering/Resolving]
  - Headache [Unknown]
  - Dizziness [Unknown]
  - Exostosis [Unknown]
  - Abdominal pain upper [Unknown]
  - Haemoptysis [Unknown]
